FAERS Safety Report 8269586-3 (Version None)
Quarter: 2012Q2

REPORT INFORMATION
  Report Type: 
  Country: None (occurrence: None)
  Receive Date: 20120410
  Receipt Date: 20120403
  Transmission Date: 20120825
  Serious: Yes (Hospitalization)
  Sender: FDA-Public Use
  Company Number: DE-AMGEN-DEUSP2012020977

PATIENT
  Sex: Male

DRUGS (2)
  1. PROLIA [Suspect]
     Indication: OSTEOPOROSIS
     Dosage: UNK, Q2WK
  2. DICLOFENAC SODIUM [Suspect]
     Indication: PAIN

REACTIONS (2)
  - BLOOD TEST ABNORMAL [None]
  - MEDICATION ERROR [None]
